FAERS Safety Report 19896532 (Version 1)
Quarter: 2021Q3

REPORT INFORMATION
  Report Type: Report from Study
  Country: NL (occurrence: NL)
  Receive Date: 20210929
  Receipt Date: 20210929
  Transmission Date: 20211014
  Serious: Yes (Hospitalization)
  Sender: FDA-Public Use
  Company Number: NL-MYLANLABS-2021M1066930

PATIENT
  Age: 75 Year
  Sex: Male

DRUGS (5)
  1. TRASTUZUMAB. [Suspect]
     Active Substance: TRASTUZUMAB
     Indication: GASTRIC CANCER
     Dosage: 400 MILLIGRAM, Q3W
     Route: 042
     Dates: start: 20130828, end: 20180725
  2. OXALIPLATIN. [Suspect]
     Active Substance: OXALIPLATIN
     Indication: GASTRIC CANCER
     Dosage: 109 MILLIGRAM, Q3W
     Route: 042
     Dates: start: 20130828, end: 20131211
  3. BEVACIZUMAB. [Concomitant]
     Active Substance: BEVACIZUMAB
     Indication: GASTRIC CANCER
     Dosage: 503 MILLIGRAM, Q3W
     Route: 042
     Dates: start: 20130828, end: 20180725
  4. CAPECITABINE. [Suspect]
     Active Substance: CAPECITABINE
     Indication: GASTRIC CANCER
     Dosage: 3300 MILLIGRAM, BID
     Route: 048
     Dates: start: 20130828, end: 20140219
  5. DOCETAXEL. [Suspect]
     Active Substance: DOCETAXEL
     Indication: GASTRIC CANCER
     Dosage: 94 MILLIGRAM, Q3W
     Route: 042
     Dates: start: 20130828, end: 20131211

REACTIONS (1)
  - Malaise [Unknown]

NARRATIVE: CASE EVENT DATE: 20180810
